FAERS Safety Report 7473320-4 (Version None)
Quarter: 2011Q2

REPORT INFORMATION
  Report Type: 
  Country: None (occurrence: None)
  Receive Date: 20110503
  Receipt Date: 20110418
  Transmission Date: 20111010
  Serious: Yes (Other)
  Sender: FDA-Public Use
  Company Number: 8037729

PATIENT
  Sex: Male
  Weight: 3.5 kg

DRUGS (4)
  1. LAMOTRIGINE [Concomitant]
  2. FOLIC ACID [Concomitant]
  3. PRENATAL VITAMINS /01549301/ [Concomitant]
  4. KEPPRA [Suspect]
     Indication: EPILEPSY
     Dosage: (1000 MG TRANSPLACENTAL)
     Route: 064

REACTIONS (4)
  - URETHRAL VALVES [None]
  - CONGENITAL HYDRONEPHROSIS [None]
  - MALAISE [None]
  - MATERNAL DRUGS AFFECTING FOETUS [None]
